FAERS Safety Report 14335906 (Version 6)
Quarter: 2022Q2

REPORT INFORMATION
  Report Type: Report from Study
  Country: DE (occurrence: None)
  Receive Date: 20171229
  Receipt Date: 20220427
  Transmission Date: 20220721
  Serious: Yes (Hospitalization)
  Sender: FDA-Public Use
  Company Number: DE-ROCHE-2046594

PATIENT
  Age: 71 Year
  Sex: Female
  Weight: 68 kg

DRUGS (12)
  1. ATEZOLIZUMAB [Suspect]
     Active Substance: ATEZOLIZUMAB
     Indication: Malignant melanoma
     Dosage: RECEIVED MOST RECENT DOSE OF ATEZOLIZUMAB ON 07/DEC/2017.
     Route: 042
     Dates: start: 20171123
  2. COBIMETINIB [Suspect]
     Active Substance: COBIMETINIB
     Indication: Malignant melanoma
     Dosage: DAILY ON DAYS 1 TO 21 OF EVERY 28 DAYS CYCLE?RECEIVED MOST RECENT DOSE (90 MG) OF COBIMETINIB ON 20/
     Route: 048
     Dates: start: 20171026
  3. VEMURAFENIB [Suspect]
     Active Substance: VEMURAFENIB
     Indication: Metastatic malignant melanoma
     Dosage: RECEIVED MOST RECENT DOSE (3 TABLETS) OF VEMURAFENIB ON 20/DEC/2017.
     Route: 048
     Dates: start: 20171026
  4. LOSARTAN [Concomitant]
     Active Substance: LOSARTAN
     Indication: Hypertension
  5. PANTOPRAZOLE SODIUM [Concomitant]
     Active Substance: PANTOPRAZOLE SODIUM
     Dates: start: 20171102
  6. TORSEMIDE [Concomitant]
     Active Substance: TORSEMIDE
     Indication: Oedema peripheral
     Dates: start: 20171207, end: 20180118
  7. BETAMETHASONE DIPROPIONATE\GENTAMICIN SULFATE [Concomitant]
     Active Substance: BETAMETHASONE DIPROPIONATE\GENTAMICIN SULFATE
     Indication: Rash
     Dates: start: 20171221, end: 20190104
  8. METFORMIN [Concomitant]
     Active Substance: METFORMIN HYDROCHLORIDE
     Indication: Diabetes mellitus
     Dates: end: 20181025
  9. ALLOPURINOL [Concomitant]
     Active Substance: ALLOPURINOL
     Dates: end: 20181025
  10. DIFLUCORTOLONE VALERATE [Concomitant]
     Active Substance: DIFLUCORTOLONE VALERATE
     Indication: Rash
     Dates: start: 20171109, end: 20181020
  11. DIMENHYDRINATE [Concomitant]
     Active Substance: DIMENHYDRINATE
     Indication: Nausea
     Dates: start: 20171109, end: 20181020
  12. ONGLYZA [Concomitant]
     Active Substance: SAXAGLIPTIN HYDROCHLORIDE
     Indication: Diabetes mellitus

REACTIONS (1)
  - Acute kidney injury [Recovered/Resolved]

NARRATIVE: CASE EVENT DATE: 20171221
